FAERS Safety Report 15587732 (Version 1)
Quarter: 2018Q4

REPORT INFORMATION
  Report Type: Spontaneous
  Country: ZA (occurrence: ZA)
  Receive Date: 20181105
  Receipt Date: 20181105
  Transmission Date: 20190205
  Serious: Yes (Other)
  Sender: FDA-Public Use
  Company Number: ZA-SAKK-2018SA301051AA

PATIENT
  Sex: Female

DRUGS (4)
  1. SALAZOPYRIN [Concomitant]
     Active Substance: SULFASALAZINE
     Dosage: UNK
     Dates: start: 201710, end: 201801
  2. CHLOROQUINE. [Suspect]
     Active Substance: CHLOROQUINE
     Dosage: UNK
     Dates: start: 201710, end: 201801
  3. ARAVA [Suspect]
     Active Substance: LEFLUNOMIDE
     Dosage: UNK
     Dates: start: 201804, end: 201805
  4. METHOTREXATE. [Concomitant]
     Active Substance: METHOTREXATE
     Dosage: UNK
     Dates: start: 201801, end: 201804

REACTIONS (6)
  - Drug intolerance [Unknown]
  - Synovitis [Unknown]
  - Aspartate aminotransferase increased [Unknown]
  - Arthropathy [Unknown]
  - Alanine aminotransferase increased [Unknown]
  - Psoriatic arthropathy [Unknown]
